FAERS Safety Report 8089801-9 (Version None)
Quarter: 2012Q1

REPORT INFORMATION
  Report Type: 
  Country: None (occurrence: None)
  Receive Date: 20120128
  Receipt Date: 20110714
  Transmission Date: 20120608
  Serious: No
  Sender: FDA-Public Use
  Company Number: US-ABBOTT-11P-163-0838746-00

PATIENT
  Age: 65 Year
  Sex: Female

DRUGS (7)
  1. GLIPIZIDE [Concomitant]
     Indication: DIABETES MELLITUS
     Dosage: 2 TABS IN EVENING AND 1/2 TAB IN MORNING
     Route: 048
  2. GLUCOPHAGE [Concomitant]
     Indication: DIABETES MELLITUS
     Route: 048
  3. LISINOPRIL [Concomitant]
     Indication: HYPERTENSION
     Route: 048
  4. HUMIRA [Suspect]
     Indication: PSORIASIS
     Dates: start: 20110701
  5. METFFORMIN HYDROCHLORIDE [Concomitant]
     Indication: DIABETES MELLITUS
     Route: 048
  6. PENTASA [Concomitant]
     Indication: CROHN'S DISEASE
     Route: 048
  7. SIMVASTATIN [Concomitant]
     Indication: BLOOD CHOLESTEROL INCREASED
     Route: 048

REACTIONS (1)
  - INJECTION SITE PAIN [None]
